FAERS Safety Report 6497136-0 (Version None)
Quarter: 2009Q4

REPORT INFORMATION
  Report Type: 
  Country: None (occurrence: None)
  Receive Date: 20091215
  Receipt Date: 20090406
  Transmission Date: 20100525
  Serious: No
  Sender: FDA-Public Use
  Company Number: A0777382A

PATIENT
  Age: 64 Year
  Sex: Female

DRUGS (3)
  1. AVODART [Suspect]
     Route: 067
  2. ESTRADERM [Concomitant]
  3. MULTI-VITAMIN [Concomitant]

REACTIONS (1)
  - VULVOVAGINAL DISCOMFORT [None]
